FAERS Safety Report 13039368 (Version 1)
Quarter: 2016Q4

REPORT INFORMATION
  Report Type: Spontaneous
  Country: US (occurrence: US)
  Receive Date: 20161216
  Receipt Date: 20161216
  Transmission Date: 20170207
  Serious: Yes (Death)
  Sender: FDA-Public Use
  Company Number: None

PATIENT
  Age: 17 Year
  Sex: Female
  Weight: 95.85 kg

DRUGS (6)
  1. RISPERIDONE. [Suspect]
     Active Substance: RISPERIDONE
     Indication: ANGER
     Route: 048
  2. ADDERALL [Concomitant]
     Active Substance: AMPHETAMINE ASPARTATE\AMPHETAMINE SULFATE\DEXTROAMPHETAMINE SACCHARATE\DEXTROAMPHETAMINE SULFATE
  3. LORAZEPAM. [Concomitant]
     Active Substance: LORAZEPAM
  4. DEPO-PROVERA [Concomitant]
     Active Substance: MEDROXYPROGESTERONE ACETATE
  5. VITAMIN D [Concomitant]
     Active Substance: CHOLECALCIFEROL
  6. MELATONIN [Concomitant]
     Active Substance: MELATONIN

REACTIONS (5)
  - Cardiomyopathy [None]
  - Obesity [None]
  - Sudden death [None]
  - Ventricular arrhythmia [None]
  - Weight increased [None]

NARRATIVE: CASE EVENT DATE: 20151222
